FAERS Safety Report 6068699-4 (Version None)
Quarter: 2009Q1

REPORT INFORMATION
  Report Type: 
  Country: None (occurrence: None)
  Receive Date: 20090206
  Receipt Date: 20090128
  Transmission Date: 20090719
  Serious: Yes (Congenital Anomaly)
  Sender: FDA-Public Use
  Company Number: B0556379A

PATIENT
  Sex: Male

DRUGS (3)
  1. ABACAVIR SULFATE/LAMIVUDINE [Suspect]
     Dates: end: 20080401
  2. KALETRA [Suspect]
     Dates: end: 20080401
  3. FUZEON [Suspect]
     Dates: end: 20080401

REACTIONS (3)
  - CONGENITAL SKIN DISORDER [None]
  - DRUG EXPOSURE DURING PREGNANCY [None]
  - SKIN DEPIGMENTATION [None]
